FAERS Safety Report 9018057 (Version 2)
Quarter: 2013Q1

REPORT INFORMATION
  Report Type: Report from Study
  Country: CA (occurrence: CA)
  Receive Date: 20130117
  Receipt Date: 20130208
  Transmission Date: 20140127
  Serious: Yes (Hospitalization, Other)
  Sender: FDA-Public Use
  Company Number: CA-ABBOTT-13P-028-1037913-00

PATIENT
  Sex: Male

DRUGS (1)
  1. HUMIRA [Suspect]
     Indication: CROHN^S DISEASE
     Route: 058
     Dates: start: 20100210, end: 20121214

REACTIONS (4)
  - Malaise [Not Recovered/Not Resolved]
  - Malaise [Unknown]
  - Intestinal perforation [Unknown]
  - Abscess [Unknown]
